FAERS Safety Report 7235618-4 (Version None)
Quarter: 2011Q1

REPORT INFORMATION
  Report Type: 
  Country: None (occurrence: None)
  Receive Date: 20110120
  Receipt Date: 20110112
  Transmission Date: 20110831
  Serious: Yes (Death)
  Sender: FDA-Public Use
  Company Number: US-JNJFOC-20110101399

PATIENT
  Age: 47 Year
  Sex: Female

DRUGS (6)
  1. SSRI [Suspect]
     Indication: SUICIDE ATTEMPT
     Route: 048
  2. BENZODIAZEPINE NOS [Suspect]
     Indication: SUICIDE ATTEMPT
     Route: 048
  3. MORPHINE [Suspect]
     Indication: SUICIDE ATTEMPT
     Route: 048
  4. TRAMADOL [Suspect]
     Indication: SUICIDE ATTEMPT
     Route: 048
  5. ANTI-PSYCHOTIC, NOS [Suspect]
     Indication: SUICIDE ATTEMPT
     Route: 048
  6. RISPERDAL [Suspect]
     Indication: SUICIDE ATTEMPT
     Route: 048

REACTIONS (1)
  - TOXICITY TO VARIOUS AGENTS [None]
